FAERS Safety Report 16778215 (Version 4)
Quarter: 2019Q4

REPORT INFORMATION
  Report Type: Spontaneous
  Country: KR (occurrence: KR)
  Receive Date: 20190905
  Receipt Date: 20191227
  Transmission Date: 20200122
  Serious: Yes (Hospitalization, Other)
  Sender: FDA-Public Use
  Company Number: KR-ALEXION PHARMACEUTICALS INC.-A201913154

PATIENT
  Age: 67 Year
  Sex: Male

DRUGS (11)
  1. ASPIRIN PROTECT [Concomitant]
     Active Substance: ASPIRIN
     Indication: PAROXYSMAL NOCTURNAL HAEMOGLOBINURIA
     Dosage: 100 MG, QD
     Route: 065
  2. ASPIRIN                            /00002701/ [Concomitant]
     Active Substance: ASPIRIN
     Indication: PAROXYSMAL NOCTURNAL HAEMOGLOBINURIA
     Dosage: 100 MG, QD
     Route: 065
  3. SOLIRIS [Suspect]
     Active Substance: ECULIZUMAB
     Dosage: 900 MG, Q2W
     Route: 042
     Dates: start: 20160420
  4. FOLSAN [Concomitant]
     Active Substance: FOLIC ACID
     Indication: PAROXYSMAL NOCTURNAL HAEMOGLOBINURIA
     Dosage: 1 MG, BID
     Route: 065
  5. FOLSAN [Concomitant]
     Active Substance: FOLIC ACID
     Dosage: 2 MG, BID
     Route: 065
  6. DICAMAX [Concomitant]
     Indication: OSTEOPOROSIS
     Dosage: 500 MG/ 1000 IU, QD
     Route: 065
  7. CALCORT [Concomitant]
     Active Substance: DEFLAZACORT
     Indication: PAROXYSMAL NOCTURNAL HAEMOGLOBINURIA
     Dosage: 24/12 MG, BID
     Route: 065
  8. CALCORT [Concomitant]
     Active Substance: DEFLAZACORT
     Dosage: 12 MG, QD
     Route: 065
  9. SOLIRIS [Suspect]
     Active Substance: ECULIZUMAB
     Indication: PAROXYSMAL NOCTURNAL HAEMOGLOBINURIA
     Dosage: 600 MG, QW
     Route: 042
     Dates: start: 20160323, end: 20160414
  10. LANSOPRAZOLE. [Concomitant]
     Active Substance: LANSOPRAZOLE
     Indication: PROPHYLAXIS AGAINST GASTROINTESTINAL ULCER
     Dosage: 15 MG, QD
     Route: 065
  11. CALCORT [Concomitant]
     Active Substance: DEFLAZACORT
     Dosage: 12 MG, BID
     Route: 065

REACTIONS (5)
  - Osteoporosis [Not Recovered/Not Resolved]
  - Atrial fibrillation [Unknown]
  - Haemoglobin decreased [Recovered/Resolved]
  - Osteoarthritis [Recovered/Resolved]
  - Hypotension [Unknown]

NARRATIVE: CASE EVENT DATE: 201606
